FAERS Safety Report 6110122-5 (Version None)
Quarter: 2009Q1

REPORT INFORMATION
  Report Type: 
  Country: None (occurrence: None)
  Receive Date: 20090306
  Receipt Date: 20090129
  Transmission Date: 20090719
  Serious: Yes (Other)
  Sender: FDA-Public Use
  Company Number: CHPA2009US03014

PATIENT
  Age: 2 Year
  Sex: Male
  Weight: 13.2 kg

DRUGS (1)
  1. TRIAMINIC SRT [Suspect]
     Indication: NASOPHARYNGITIS
     Dosage: ORAL : 1 DF, ONCE/SINGLE, ORAL
     Route: 048
     Dates: start: 20090129

REACTIONS (4)
  - BRONCHITIS [None]
  - CROUP INFECTIOUS [None]
  - INCORRECT DOSE ADMINISTERED [None]
  - MALAISE [None]
